FAERS Safety Report 7526633-1 (Version None)
Quarter: 2011Q2

REPORT INFORMATION
  Report Type: 
  Country: None (occurrence: None)
  Receive Date: 20110606
  Receipt Date: 20110602
  Transmission Date: 20111010
  Serious: Yes (Death, Hospitalization, Other)
  Sender: FDA-Public Use
  Company Number: US-PFIZER INC-2011120661

PATIENT
  Age: 28 Year
  Sex: Female

DRUGS (3)
  1. XANAX [Suspect]
     Dosage: UNK
     Route: 048
  2. LATUDA [Suspect]
     Indication: BIPOLAR DISORDER
     Dosage: 40 MG, UNK
     Dates: start: 20110301
  3. LATUDA [Suspect]
     Dosage: 80 MG, UNK
     Route: 048
     Dates: start: 20110101

REACTIONS (3)
  - OVERDOSE [None]
  - SUICIDE ATTEMPT [None]
  - MYOCARDIAL INFARCTION [None]
